FAERS Safety Report 10180284 (Version 1)
Quarter: 2014Q2

REPORT INFORMATION
  Report Type: Spontaneous
  Country: GB (occurrence: None)
  Receive Date: 20140515
  Receipt Date: 20140515
  Transmission Date: 20141212
  Serious: Yes (Hospitalization, Other)
  Sender: FDA-Public Use
  Company Number: AUR-APL-2014-05563

PATIENT
  Age: 16 Month
  Sex: Male

DRUGS (11)
  1. CIPROFLOXACIN [Suspect]
     Indication: SKIN INFECTION
     Dates: start: 201402
  2. DOMPERIDONE ( DOMPERIDONE) [Concomitant]
  3. FOLIC ACID ( FOLIC ACID) [Concomitant]
  4. IBUPROFEN ( IBUPROFEN) [Concomitant]
  5. MORPHINE (MORPHINE) [Concomitant]
  6. PARACETAMOL ( PARACETAMOL) [Concomitant]
  7. PHENOBARBITAL ( PHENOBARBITAL) [Concomitant]
  8. RANITIDINE ( RANITIDINE) [Concomitant]
  9. VITAMIN D ( ERGOCALCIFEROL) [Concomitant]
  10. VITAMN E ( TOCOPHEROL) [Concomitant]
  11. VITAMIN K ( PHYTOMENADIONE) [Concomitant]

REACTIONS (4)
  - Colitis [None]
  - Flatulence [None]
  - Bacteraemia [None]
  - Hepatic function abnormal [None]
